FAERS Safety Report 8899839 (Version 2)
Quarter: 2012Q4

REPORT INFORMATION
  Report Type: 
  Country: CA (occurrence: CA)
  Receive Date: 20121109
  Receipt Date: 20121207
  Transmission Date: 20130627
  Serious: Yes (Other)
  Sender: FDA-Public Use
  Company Number: PHHY2012CA102460

PATIENT
  Age: 35 Year
  Sex: Female

DRUGS (3)
  1. GILENYA [Suspect]
     Indication: RELAPSING-REMITTING MULTIPLE SCLEROSIS
     Dosage: 0.5 mg, QD
     Route: 048
     Dates: start: 20121101
  2. VENTOLIN [Concomitant]
     Dosage: UNK UKN, PRN
  3. PULMICORT [Concomitant]
     Dosage: UNK UKN, QD

REACTIONS (5)
  - Fatigue [Recovering/Resolving]
  - Dyspnoea exertional [Recovered/Resolved]
  - Headache [Recovered/Resolved]
  - Hypersensitivity [Recovering/Resolving]
  - Influenza like illness [Recovering/Resolving]
